FAERS Safety Report 25225874 (Version 1)
Quarter: 2025Q2

REPORT INFORMATION
  Report Type: Spontaneous
  Country: US (occurrence: US)
  Receive Date: 20250422
  Receipt Date: 20250422
  Transmission Date: 20250716
  Serious: No
  Sender: SANOFI AVENTIS
  Company Number: US-SA-2025SA115033

PATIENT
  Age: 84 Year
  Sex: Male

DRUGS (13)
  1. DUPIXENT [Suspect]
     Active Substance: DUPILUMAB
     Indication: Dermatitis atopic
     Dosage: 300 MG, QOW
     Route: 058
     Dates: start: 20250305
  2. KETOCONAZOLE [Concomitant]
     Active Substance: KETOCONAZOLE
  3. MOMETASONE FUROATE [Concomitant]
     Active Substance: MOMETASONE FUROATE
  4. REPATHA [Concomitant]
     Active Substance: EVOLOCUMAB
     Indication: Blood cholesterol
  5. TACROLIMUS [Concomitant]
     Active Substance: TACROLIMUS
  6. LEQVIO [Concomitant]
     Active Substance: INCLISIRAN SODIUM
  7. AZELASTINE HYDROCHLORIDE [Concomitant]
     Active Substance: AZELASTINE HYDROCHLORIDE
  8. BETAMETHASONE [Concomitant]
     Active Substance: BETAMETHASONE
  9. FINASTERIDE [Concomitant]
     Active Substance: FINASTERIDE
  10. NITROGLYCERIN [Concomitant]
     Active Substance: NITROGLYCERIN
     Route: 060
  11. TAMSULOSIN HYDROCHLORIDE [Concomitant]
     Active Substance: TAMSULOSIN HYDROCHLORIDE
  12. TYLENOL 8HR [Concomitant]
     Active Substance: ACETAMINOPHEN
  13. ZETIA [Concomitant]
     Active Substance: EZETIMIBE

REACTIONS (1)
  - Musculoskeletal discomfort [Unknown]

NARRATIVE: CASE EVENT DATE: 20250101
